FAERS Safety Report 8540084-2 (Version None)
Quarter: 2012Q3

REPORT INFORMATION
  Report Type: 
  Country: None (occurrence: None)
  Receive Date: 20120713
  Receipt Date: 20120702
  Transmission Date: 20120928
  Serious: Yes (Death, Hospitalization, Other)
  Sender: FDA-Public Use
  Company Number: 2012P1048036

PATIENT
  Age: 34 Year
  Sex: Female

DRUGS (4)
  1. HALOPERIDOL [Suspect]
     Indication: BINGE DRINKING
     Dosage: 20 MG, QD
  2. TRIHEXYPHENIDYL HCL [Suspect]
     Indication: BINGE DRINKING
     Dosage: 4 MG, QD
  3. LITHIUM CARBONATE [Suspect]
     Indication: BIPOLAR DISORDER
  4. CHLORPROMAZINE [Suspect]
     Indication: BINGE DRINKING
     Dosage: 100 MG, QD

REACTIONS (15)
  - DEPRESSED LEVEL OF CONSCIOUSNESS [None]
  - RESPIRATORY RATE INCREASED [None]
  - TONGUE DRY [None]
  - BODY TEMPERATURE DECREASED [None]
  - RHABDOMYOLYSIS [None]
  - BLOOD CREATININE INCREASED [None]
  - BLOOD SODIUM DECREASED [None]
  - BLOOD POTASSIUM INCREASED [None]
  - BLOOD CHLORIDE DECREASED [None]
  - BLOOD PH DECREASED [None]
  - MUCOSAL DRYNESS [None]
  - MUSCLE RIGIDITY [None]
  - BLOOD CREATINE PHOSPHOKINASE INCREASED [None]
  - HEART RATE INCREASED [None]
  - DIABETIC HYPEROSMOLAR COMA [None]
